FAERS Safety Report 7558534-7 (Version None)
Quarter: 2011Q2

REPORT INFORMATION
  Report Type: 
  Country: None (occurrence: None)
  Receive Date: 20110620
  Receipt Date: 20110613
  Transmission Date: 20111010
  Serious: Yes (Hospitalization, Other)
  Sender: FDA-Public Use
  Company Number: CA-BRISTOL-MYERS SQUIBB COMPANY-15001555

PATIENT
  Age: 76 Year
  Sex: Female

DRUGS (5)
  1. ACCURETIC [Concomitant]
     Dosage: 1DF-20/12.5,
     Dates: start: 20050201
  2. PLACEBO [Suspect]
     Indication: THROMBOSIS PROPHYLAXIS
     Route: 048
     Dates: start: 20090416, end: 20100105
  3. WARFARIN SODIUM [Suspect]
     Indication: THROMBOSIS PROPHYLAXIS
     Route: 048
     Dates: start: 20090416, end: 20100105
  4. CRESTOR [Concomitant]
     Dates: start: 20050201
  5. CONJUGATED ESTROGEN [Concomitant]
     Dates: start: 20070101

REACTIONS (2)
  - RENAL EMBOLISM [None]
  - SPLENIC EMBOLISM [None]
